FAERS Safety Report 4466063-2 (Version None)
Quarter: 2004Q3

REPORT INFORMATION
  Report Type: 
  Country: None (occurrence: None)
  Receive Date: 20040930
  Receipt Date: 20040917
  Transmission Date: 20050211
  Serious: Yes (Other)
  Sender: FDA-Public Use
  Company Number: 2004054174

PATIENT
  Age: 67 Year
  Sex: Female

DRUGS (5)
  1. LIPITOR [Suspect]
     Indication: DYSLIPIDAEMIA
     Dosage: 10 MG (10 MG, 1 IN 1 D), ORAL
     Route: 048
     Dates: start: 20031001
  2. TYLEX (CARBINOXAMINE MALEATE, PARACETAMOL, PHENYLPHRINE HYDROCHLORIDE) [Suspect]
     Indication: MONOPLEGIA
     Dates: start: 20040609
  3. CORTISONE (CORTISONE) [Concomitant]
  4. PAROXETINE HCL [Concomitant]
  5. CYCLOBENZAPRINE HYDROCHLORIDE [Concomitant]

REACTIONS (9)
  - COUGH [None]
  - GENERALISED ERYTHEMA [None]
  - INFLAMMATION [None]
  - INFLUENZA [None]
  - MONOPLEGIA [None]
  - PNEUMONIA [None]
  - SPINAL CORD DISORDER [None]
  - URINARY TRACT INFECTION [None]
  - WEIGHT DECREASED [None]
